FAERS Safety Report 7377334-4 (Version None)
Quarter: 2011Q1

REPORT INFORMATION
  Report Type: 
  Country: None (occurrence: None)
  Receive Date: 20110328
  Receipt Date: 20110228
  Transmission Date: 20110831
  Serious: Yes (Hospitalization, Other)
  Sender: FDA-Public Use
  Company Number: US-BAYER-201039324NA

PATIENT
  Sex: Female
  Weight: 81.633 kg

DRUGS (3)
  1. YAZ [Suspect]
     Indication: PRODUCT USED FOR UNKNOWN INDICATION
     Route: 048
     Dates: start: 20070831, end: 20080531
  2. SINGULAIR [Concomitant]
     Dosage: 10 MG, UNK
     Route: 048
  3. ADVAIR DISKUS 100/50 [Concomitant]

REACTIONS (2)
  - CHOLECYSTITIS CHRONIC [None]
  - CHOLECYSTECTOMY [None]
